FAERS Safety Report 19255573 (Version 1)
Quarter: 2021Q2

REPORT INFORMATION
  Report Type: Spontaneous
  Country: US (occurrence: US)
  Receive Date: 20210513
  Receipt Date: 20210513
  Transmission Date: 20210717
  Serious: Yes (Hospitalization, Other)
  Sender: FDA-Public Use
  Company Number: US-UNITED THERAPEUTICS-UNT-2018-006036

PATIENT
  Age: 44 Year
  Sex: Female
  Weight: 58.96 kg

DRUGS (7)
  1. WARFARIN [Concomitant]
     Active Substance: WARFARIN
     Indication: PRODUCT USED FOR UNKNOWN INDICATION
     Dosage: UNK
     Route: 065
  2. ADCIRCA [Concomitant]
     Active Substance: TADALAFIL
     Indication: PRODUCT USED FOR UNKNOWN INDICATION
     Dosage: 40 MG, QD
     Route: 065
  3. LETAIRIS [Suspect]
     Active Substance: AMBRISENTAN
     Indication: PRODUCT USED FOR UNKNOWN INDICATION
     Dosage: 10 MG, QD
     Route: 065
     Dates: start: 20180308
  4. LETAIRIS [Suspect]
     Active Substance: AMBRISENTAN
     Dosage: UNK
     Route: 065
  5. LETAIRIS [Suspect]
     Active Substance: AMBRISENTAN
     Dosage: UNK
     Route: 065
  6. LETAIRIS [Suspect]
     Active Substance: AMBRISENTAN
     Dosage: UNK
     Route: 065
  7. REMODULIN [Suspect]
     Active Substance: TREPROSTINIL
     Indication: PULMONARY ARTERIAL HYPERTENSION
     Dosage: 0.093 ?G/KG, CONTINUING
     Route: 041
     Dates: start: 20180119

REACTIONS (13)
  - Injection site pruritus [Unknown]
  - Injection site irritation [Unknown]
  - Chills [Unknown]
  - Diarrhoea [Not Recovered/Not Resolved]
  - Staphylococcal bacteraemia [Recovered/Resolved]
  - Injection site erythema [Not Recovered/Not Resolved]
  - Night sweats [Unknown]
  - Chest discomfort [Unknown]
  - Feeling abnormal [Unknown]
  - Injection site discharge [Unknown]
  - Injection site pain [Not Recovered/Not Resolved]
  - Vascular device infection [Recovered/Resolved]
  - Swelling [Unknown]

NARRATIVE: CASE EVENT DATE: 2018
